FAERS Safety Report 6977269-2 (Version None)
Quarter: 2010Q3

REPORT INFORMATION
  Report Type: 
  Country: None (occurrence: None)
  Receive Date: 20100910
  Receipt Date: 20100902
  Transmission Date: 20110219
  Serious: Yes (Other)
  Sender: FDA-Public Use
  Company Number: GXKR2010GB10025

PATIENT
  Sex: Male

DRUGS (2)
  1. RISPERIDONE (NGX) [Suspect]
     Dosage: 2 MG, UNK
     Route: 048
  2. RISPERIDONE [Suspect]
     Dosage: 25 MG, UNK
     Route: 030

REACTIONS (1)
  - PHYSICAL ASSAULT [None]
